FAERS Safety Report 10013618 (Version 1)
Quarter: 2014Q1

REPORT INFORMATION
  Report Type: Spontaneous
  Country: US (occurrence: US)
  Receive Date: 20140315
  Receipt Date: 20140315
  Transmission Date: 20141002
  Serious: No
  Sender: FDA-Public Use
  Company Number: US-B.I. PHARMACEUTICALS,INC./RIDGEFIELD-2014-BI-10426BP

PATIENT
  Age: 76 Year
  Sex: Female
  Weight: 93 kg

DRUGS (1)
  1. COMBIVENT [Suspect]
     Indication: CHRONIC OBSTRUCTIVE PULMONARY DISEASE
     Dosage: DOSE PER APPLICATION: 20 MCG / 100 MCG; DAILY DOSE: 240 MCG/ 1200 MCG
     Route: 055
     Dates: start: 201312

REACTIONS (3)
  - Anxiety [Not Recovered/Not Resolved]
  - Malaise [Not Recovered/Not Resolved]
  - Overdose [Unknown]
